FAERS Safety Report 24936354 (Version 2)
Quarter: 2025Q1

REPORT INFORMATION
  Report Type: Spontaneous
  Country: US (occurrence: US)
  Receive Date: 20250206
  Receipt Date: 20250220
  Transmission Date: 20250409
  Serious: Yes (Other)
  Sender: LUPIN
  Company Number: US-LUPIN PHARMACEUTICALS INC.-2025-00889

PATIENT

DRUGS (12)
  1. XOPENEX HFA [Suspect]
     Active Substance: LEVALBUTEROL TARTRATE
     Indication: Chronic graft versus host disease in lung
  2. XOPENEX HFA [Suspect]
     Active Substance: LEVALBUTEROL TARTRATE
     Indication: Graft versus host disease in eye
  3. JAKAFI [Suspect]
     Active Substance: RUXOLITINIB
     Indication: Graft versus host disease in lung
     Dosage: UNK, QD, EVERYDAY
     Route: 065
  4. JAKAFI [Suspect]
     Active Substance: RUXOLITINIB
     Indication: Graft versus host disease in eye
  5. ABATACEPT [Suspect]
     Active Substance: ABATACEPT
     Indication: Graft versus host disease in lung
     Route: 065
  6. ABATACEPT [Suspect]
     Active Substance: ABATACEPT
     Indication: Graft versus host disease in eye
  7. SOLU-MEDROL [Suspect]
     Active Substance: METHYLPREDNISOLONE SODIUM SUCCINATE
     Indication: Graft versus host disease in lung
     Dosage: UNK, BID, AM AND PM
     Route: 065
  8. SOLU-MEDROL [Suspect]
     Active Substance: METHYLPREDNISOLONE SODIUM SUCCINATE
     Indication: Graft versus host disease in eye
  9. SALINE [Suspect]
     Active Substance: SODIUM CHLORIDE
     Indication: Graft versus host disease in lung
     Route: 065
  10. SALINE [Suspect]
     Active Substance: SODIUM CHLORIDE
     Indication: Chronic graft versus host disease in eye
  11. TRELEGY ELLIPTA [Suspect]
     Active Substance: FLUTICASONE FUROATE\UMECLIDINIUM BROMIDE\VILANTEROL TRIFENATATE
     Indication: Graft versus host disease in lung
     Route: 065
  12. TRELEGY ELLIPTA [Suspect]
     Active Substance: FLUTICASONE FUROATE\UMECLIDINIUM BROMIDE\VILANTEROL TRIFENATATE
     Indication: Graft versus host disease in eye

REACTIONS (3)
  - Graft versus host disease in eye [Unknown]
  - Chronic graft versus host disease in lung [Not Recovered/Not Resolved]
  - Condition aggravated [Unknown]
